FAERS Safety Report 8094596-9 (Version None)
Quarter: 2012Q1

REPORT INFORMATION
  Report Type: 
  Country: None (occurrence: None)
  Receive Date: 20120125
  Receipt Date: 20120109
  Transmission Date: 20120608
  Serious: Yes (Hospitalization)
  Sender: FDA-Public Use
  Company Number: 1161830

PATIENT
  Age: 60 Year
  Sex: Female

DRUGS (9)
  1. COCAINE [Suspect]
     Indication: PRODUCT USED FOR UNKNOWN INDICATION
  2. METRONIDAZOLE [Concomitant]
  3. CINACALCET HYDROCHLORIDE [Concomitant]
  4. CIPROFLOXACIN [Suspect]
     Indication: ABSCESS
     Dosage: 400 MG EVERY 24 HOURS, INTRVENOUS (NOT OTHERWISE SPECIFIED)
  5. CIPROFLOXACIN [Suspect]
     Indication: DIVERTICULUM
     Dosage: 400 MG EVERY 24 HOURS, INTRVENOUS (NOT OTHERWISE SPECIFIED)
  6. METOCLOPRAMIDE [Concomitant]
  7. MORPHINE SULFATE [Concomitant]
  8. CEFOXITIN SODIUM [Suspect]
     Indication: ABSCESS
     Dosage: 2 GRAMS, INTRAVENOUS (NOT OTHERWISE SPECIFIED)
     Route: 042
  9. CEFOXITIN SODIUM [Suspect]
     Indication: DIVERTICULUM
     Dosage: 2 GRAMS, INTRAVENOUS (NOT OTHERWISE SPECIFIED)
     Route: 042

REACTIONS (17)
  - CATATONIA [None]
  - MYOCLONUS [None]
  - MUSCLE RIGIDITY [None]
  - NEGATIVISM [None]
  - DISTURBANCE IN ATTENTION [None]
  - ABSCESS [None]
  - LOCKED-IN SYNDROME [None]
  - BLOOD CREATININE INCREASED [None]
  - SCREAMING [None]
  - PERSEVERATION [None]
  - FEAR [None]
  - CEREBRAL SMALL VESSEL ISCHAEMIC DISEASE [None]
  - BLOOD UREA INCREASED [None]
  - WHITE BLOOD CELL COUNT INCREASED [None]
  - NEUROTOXICITY [None]
  - TREATMENT NONCOMPLIANCE [None]
  - TACHYCARDIA [None]
